FAERS Safety Report 5429816-X (Version None)
Quarter: 2007Q3

REPORT INFORMATION
  Report Type: 
  Country: None (occurrence: None)
  Receive Date: 20070829
  Receipt Date: 20070822
  Transmission Date: 20080115
  Serious: Yes (Hospitalization)
  Sender: FDA-Public Use
  Company Number: US-SANOFI-SYNTHELABO-F03200700083

PATIENT
  Sex: Female

DRUGS (10)
  1. NEXIUM [Concomitant]
     Dosage: UNK
     Route: 065
  2. NORVASC [Concomitant]
     Dosage: UNK
     Route: 065
  3. TOPROL-XL [Concomitant]
     Dosage: UNK
     Route: 065
  4. REGLAN [Concomitant]
     Dosage: UNK
     Route: 065
  5. VICODIN [Concomitant]
     Dosage: UNK
     Route: 065
  6. DARVOCET [Concomitant]
     Dosage: UNK
     Route: 065
  7. QUESTRAN [Concomitant]
     Dosage: UNK
     Route: 065
  8. CETUXIMAB [Suspect]
     Indication: PANCREATIC CARCINOMA
     Route: 042
     Dates: start: 20070417, end: 20070417
  9. OXALIPLATIN [Suspect]
     Indication: PANCREATIC CARCINOMA
     Route: 042
     Dates: start: 20070418, end: 20070418
  10. GEMCITABINE HCL [Suspect]
     Indication: PANCREATIC CARCINOMA
     Route: 042
     Dates: start: 20070417, end: 20070417

REACTIONS (1)
  - MYOCARDIAL INFARCTION [None]
